FAERS Safety Report 5011739-1 (Version None)
Quarter: 2006Q2

REPORT INFORMATION
  Report Type: 
  Country: None (occurrence: None)
  Receive Date: 20060526
  Receipt Date: 20060518
  Transmission Date: 20061013
  Serious: Yes (Hospitalization)
  Sender: FDA-Public Use
  Company Number: US-JNJFOC-20060504233

PATIENT
  Sex: Female

DRUGS (26)
  1. REMICADE [Suspect]
     Route: 042
  2. REMICADE [Suspect]
     Indication: RHEUMATOID ARTHRITIS
     Route: 042
  3. METHOTREXATE [Concomitant]
  4. HUMIRA [Concomitant]
  5. PREDNISONE TAB [Concomitant]
  6. LOTREL [Concomitant]
  7. LOTREL [Concomitant]
     Dosage: DOSE 5/25
  8. NEXIUM [Concomitant]
  9. NEURONTIN [Concomitant]
  10. DARVOCET [Concomitant]
  11. DARVOCET [Concomitant]
  12. CALTRATE D [Concomitant]
  13. CALTRATE D [Concomitant]
  14. FOLIC ACID [Concomitant]
  15. GLUCOSAMINE [Concomitant]
  16. ATENOLOL [Concomitant]
  17. TRICOR [Concomitant]
  18. CYMBALTA [Concomitant]
  19. MULTIVITAMIN [Concomitant]
  20. MULTIVITAMIN [Concomitant]
  21. MULTIVITAMIN [Concomitant]
  22. MULTIVITAMIN [Concomitant]
  23. MULTIVITAMIN [Concomitant]
  24. MULTIVITAMIN [Concomitant]
  25. MULTIVITAMIN [Concomitant]
  26. MULTIVITAMIN [Concomitant]

REACTIONS (1)
  - RENAL CELL CARCINOMA STAGE UNSPECIFIED [None]
